FAERS Safety Report 19416778 (Version 3)
Quarter: 2021Q3

REPORT INFORMATION
  Report Type: Report from Study
  Country: US (occurrence: US)
  Receive Date: 20210614
  Receipt Date: 20210818
  Transmission Date: 20211014
  Serious: Yes (Other)
  Sender: FDA-Public Use
  Company Number: US-JAZZ-2018-US-001949

PATIENT
  Sex: Female

DRUGS (41)
  1. XYREM [Suspect]
     Active Substance: SODIUM OXYBATE
     Indication: CATAPLEXY
     Dosage: 3 GRAM, BID
     Route: 048
     Dates: start: 201107, end: 201112
  2. IBUPROFEN. [Concomitant]
     Active Substance: IBUPROFEN
  3. ATORVASTATIN [Concomitant]
     Active Substance: ATORVASTATIN
  4. DRONABINOL. [Concomitant]
     Active Substance: DRONABINOL
  5. XYREM [Suspect]
     Active Substance: SODIUM OXYBATE
     Indication: NARCOLEPSY
     Dosage: 3 GRAM, BID
     Route: 048
     Dates: start: 200902, end: 2009
  6. RIFAMPIN. [Concomitant]
     Active Substance: RIFAMPIN
  7. ESTRADIOL. [Concomitant]
     Active Substance: ESTRADIOL
  8. PULMICORT TURBUHALER [Concomitant]
     Active Substance: BUDESONIDE
  9. RITALIN [Concomitant]
     Active Substance: METHYLPHENIDATE HYDROCHLORIDE
  10. VITAMIN D3 [Concomitant]
     Active Substance: CHOLECALCIFEROL
  11. TRAMADOL HCL [Concomitant]
     Active Substance: TRAMADOL HYDROCHLORIDE
  12. HYDROXYZINE HYDROCHLORIDE. [Concomitant]
     Active Substance: HYDROXYZINE HYDROCHLORIDE
  13. POTASSIUM GLUCONATE [Concomitant]
     Active Substance: POTASSIUM GLUCONATE
  14. METFORMIN HCL [Concomitant]
     Active Substance: METFORMIN HYDROCHLORIDE
  15. ACETYLSALICYLIC ACID [Concomitant]
     Active Substance: ASPIRIN
  16. XYREM [Suspect]
     Active Substance: SODIUM OXYBATE
     Dosage: 3 GRAM, BID
     Route: 048
     Dates: start: 201711, end: 202106
  17. ETHAMBUTOL HCL [Concomitant]
     Active Substance: ETHAMBUTOL HYDROCHLORIDE
  18. EFFEXOR [Concomitant]
     Active Substance: VENLAFAXINE HYDROCHLORIDE
  19. IPRATROPIUM BR [Concomitant]
  20. TOPROL XL [Concomitant]
     Active Substance: METOPROLOL SUCCINATE
  21. CARDIZEM CD [Concomitant]
     Active Substance: DILTIAZEM HYDROCHLORIDE
  22. CYANOCOBALAMIN. [Concomitant]
     Active Substance: CYANOCOBALAMIN
  23. AVAPRO [Concomitant]
     Active Substance: IRBESARTAN
  24. NORVASC [Concomitant]
     Active Substance: AMLODIPINE BESYLATE
  25. LYRICA [Concomitant]
     Active Substance: PREGABALIN
  26. PROLIA [Concomitant]
     Active Substance: DENOSUMAB
  27. ALPRAZOLAM. [Concomitant]
     Active Substance: ALPRAZOLAM
  28. GLUCOPHAGE [Concomitant]
     Active Substance: METFORMIN HYDROCHLORIDE
  29. MIRAPEX [Concomitant]
     Active Substance: PRAMIPEXOLE DIHYDROCHLORIDE
  30. COENZYME Q10 [Concomitant]
     Active Substance: DIETARY SUPPLEMENT\UBIDECARENONE
  31. LOVASTATIN. [Concomitant]
     Active Substance: LOVASTATIN
  32. VALTURNA [Concomitant]
     Active Substance: ALISKIREN HEMIFUMARATE\VALSARTAN
  33. XYREM [Suspect]
     Active Substance: SODIUM OXYBATE
     Dosage: DOSE ADJUSTMENTS
     Route: 048
     Dates: start: 201112, end: 201711
  34. HORIZANT [Concomitant]
     Active Substance: GABAPENTIN ENACARBIL
  35. CLONAZEPAM. [Concomitant]
     Active Substance: CLONAZEPAM
  36. TOPIRAMATE. [Concomitant]
     Active Substance: TOPIRAMATE
  37. PROMETHAZINE [Concomitant]
     Active Substance: PROMETHAZINE HYDROCHLORIDE
  38. AZITHROMYCIN ANHYDROUS. [Concomitant]
     Active Substance: AZITHROMYCIN ANHYDROUS
  39. SUMATRIPTAN. [Concomitant]
     Active Substance: SUMATRIPTAN
  40. ALEVE [Concomitant]
     Active Substance: NAPROXEN SODIUM
  41. ASCORBIC ACID. [Concomitant]
     Active Substance: ASCORBIC ACID

REACTIONS (3)
  - Mitral valve prolapse [Not Recovered/Not Resolved]
  - Aortic valve incompetence [Not Recovered/Not Resolved]
  - Cardiac valve disease [Unknown]
